FAERS Safety Report 5293195-1 (Version None)
Quarter: 2007Q2

REPORT INFORMATION
  Report Type: 
  Country: None (occurrence: None)
  Receive Date: 20070405
  Receipt Date: 20070320
  Transmission Date: 20071010
  Serious: Yes (Hospitalization)
  Sender: FDA-Public Use
  Company Number: DSA_28927_2006

PATIENT
  Age: 79 Year
  Sex: Female

DRUGS (5)
  1. ENALAPRIL MALEATE [Suspect]
     Indication: HYPERTENSION
     Dosage: 10 MG, BID; PO
     Route: 048
     Dates: end: 20040413
  2. ENALAPRIL MALEATE [Suspect]
     Indication: HYPERTENSION
     Dosage: 10 MG BID; PO
     Route: 048
     Dates: end: 20060403
  3. ENALAPRIL MALEATE [Suspect]
     Indication: HYPERTENSION
     Dosage: 10 MG BID; PO
     Route: 048
     Dates: start: 20060101
  4. CARBIMAZOLE [Concomitant]
  5. EUTHYROX [Concomitant]

REACTIONS (5)
  - ANGIOEDEMA [None]
  - LARYNGEAL OEDEMA [None]
  - NO THERAPEUTIC RESPONSE [None]
  - SPEECH DISORDER [None]
  - TOOTH DISORDER [None]
